FAERS Safety Report 9732829 (Version 1)
Quarter: 2013Q4

REPORT INFORMATION
  Report Type: Spontaneous
  Country: US (occurrence: US)
  Receive Date: 20131205
  Receipt Date: 20131205
  Transmission Date: 20140711
  Serious: Yes (Other)
  Sender: FDA-Public Use
  Company Number: US-MYLANLABS-2013S1026729

PATIENT
  Age: 40 Year
  Sex: Female

DRUGS (2)
  1. TRAZODONE [Suspect]
     Dosage: 50MG DAILY
     Route: 065
  2. GABAPENTIN [Suspect]
     Indication: PAIN
     Route: 065

REACTIONS (1)
  - Drug-induced liver injury [Recovered/Resolved]
